FAERS Safety Report 24684114 (Version 2)
Quarter: 2024Q4

REPORT INFORMATION
  Report Type: Report from Study
  Country: US (occurrence: US)
  Receive Date: 20241202
  Receipt Date: 20241217
  Transmission Date: 20250114
  Serious: Yes (Other)
  Sender: ABBVIE
  Company Number: US-ABBVIE-6023843

PATIENT
  Age: 37 Year
  Sex: Female

DRUGS (1)
  1. RINVOQ [Suspect]
     Active Substance: UPADACITINIB
     Indication: Rheumatoid arthritis
     Dosage: FORM STRENGTH : 15 MILLIGRAMS
     Route: 048
     Dates: start: 20240908

REACTIONS (4)
  - Dermal cyst [Not Recovered/Not Resolved]
  - Impaired healing [Not Recovered/Not Resolved]
  - Skin laceration [Recovered/Resolved]
  - Wound dehiscence [Not Recovered/Not Resolved]

NARRATIVE: CASE EVENT DATE: 20240101
